FAERS Safety Report 21254636 (Version 2)
Quarter: 2022Q4

REPORT INFORMATION
  Report Type: Spontaneous
  Country: CA (occurrence: CA)
  Receive Date: 20220825
  Receipt Date: 20221207
  Transmission Date: 20230113
  Serious: Yes (Other)
  Sender: FDA-Public Use
  Company Number: CA-TAKEDA-2022TUS057946

PATIENT
  Age: 40 Year
  Sex: Female
  Weight: 56 kg

DRUGS (29)
  1. HUMAN C1-ESTERASE INHIBITOR [Suspect]
     Active Substance: HUMAN C1-ESTERASE INHIBITOR
     Indication: Hereditary angioedema with C1 esterase inhibitor deficiency
     Dosage: 3000 INTERNATIONAL UNIT, 3/WEEK
     Route: 058
     Dates: start: 20210715
  2. HUMAN C1-ESTERASE INHIBITOR [Suspect]
     Active Substance: HUMAN C1-ESTERASE INHIBITOR
     Indication: Hereditary angioedema with C1 esterase inhibitor deficiency
     Dosage: 3000 INTERNATIONAL UNIT, 3/WEEK
     Route: 058
     Dates: start: 20210715
  3. HUMAN C1-ESTERASE INHIBITOR [Suspect]
     Active Substance: HUMAN C1-ESTERASE INHIBITOR
     Indication: Hereditary angioedema with C1 esterase inhibitor deficiency
     Dosage: 3000 INTERNATIONAL UNIT, 3/WEEK
     Route: 058
     Dates: start: 20210715
  4. HUMAN C1-ESTERASE INHIBITOR [Suspect]
     Active Substance: HUMAN C1-ESTERASE INHIBITOR
     Indication: Prophylaxis
     Dosage: UNK
     Route: 058
  5. HUMAN C1-ESTERASE INHIBITOR [Suspect]
     Active Substance: HUMAN C1-ESTERASE INHIBITOR
     Indication: Prophylaxis
     Dosage: UNK
     Route: 058
  6. HUMAN C1-ESTERASE INHIBITOR [Suspect]
     Active Substance: HUMAN C1-ESTERASE INHIBITOR
     Indication: Prophylaxis
     Dosage: UNK
     Route: 058
  7. HUMAN C1-ESTERASE INHIBITOR [Suspect]
     Active Substance: HUMAN C1-ESTERASE INHIBITOR
     Indication: Hereditary angioedema
  8. HUMAN C1-ESTERASE INHIBITOR [Suspect]
     Active Substance: HUMAN C1-ESTERASE INHIBITOR
     Indication: Hereditary angioedema
  9. HUMAN C1-ESTERASE INHIBITOR [Suspect]
     Active Substance: HUMAN C1-ESTERASE INHIBITOR
     Indication: Hereditary angioedema
  10. HAEGARDA [Concomitant]
     Active Substance: HUMAN C1-ESTERASE INHIBITOR
  11. QUERCETIN [Concomitant]
     Active Substance: QUERCETIN
     Dosage: 50 MILLIGRAM
  12. OENOTHERA BIENNIS [Concomitant]
     Active Substance: OENOTHERA BIENNIS
     Dosage: 1000 MILLIGRAM
  13. LEVOMEFOLATE CALCIUM [Concomitant]
     Active Substance: LEVOMEFOLATE CALCIUM
  14. CYANOCOBALAMIN [Concomitant]
     Active Substance: CYANOCOBALAMIN
     Dosage: 9000 MICROGRAM
  15. VITAMIN B-COMPLEX [Concomitant]
     Active Substance: DEXPANTHENOL\NIACINAMIDE\PYRIDOXINE HYDROCHLORIDE\RIBOFLAVIN 5^-PHOSPHATE SODIUM\THIAMINE HYDROCHLOR
  16. ERGOCALCIFEROL [Concomitant]
     Active Substance: ERGOCALCIFEROL
  17. ALOE VERA LEAF [Concomitant]
     Active Substance: ALOE VERA LEAF
     Dosage: 100 MILLIGRAM
  18. BROMELAINS [Concomitant]
     Active Substance: BROMELAINS
     Dosage: 4000 MILLIGRAM, QD
  19. GLUTAMIC ACID [Concomitant]
     Active Substance: GLUTAMIC ACID
     Dosage: 5 GRAM, QD
  20. L THEANINE [Concomitant]
     Dosage: 200 MILLIGRAM
  21. CANNABIS SATIVA FLOWERING TOP [Concomitant]
     Active Substance: CANNABIS SATIVA FLOWERING TOP
  22. DIAZEPAM [Concomitant]
     Active Substance: DIAZEPAM
     Dosage: 5 MILLIGRAM, PRN
  23. PALMIDROL [Concomitant]
     Active Substance: PALMIDROL
     Dosage: 1200 MILLIGRAM
  24. CLONAZEPAM [Concomitant]
     Active Substance: CLONAZEPAM
     Dosage: 5 DOSAGE FORM
  25. BACLOFEN [Concomitant]
     Active Substance: BACLOFEN
     Dosage: 4 MILLIGRAM
  26. RANITIDINE [Concomitant]
     Active Substance: RANITIDINE
  27. ICATIBANT ACETATE [Concomitant]
     Active Substance: ICATIBANT ACETATE
     Dosage: 30 MILLIGRAM
  28. DIPHENHYDRAMINE HYDROCHLORIDE [Concomitant]
     Active Substance: DIPHENHYDRAMINE HYDROCHLORIDE
  29. DESLORATADINE [Concomitant]
     Active Substance: DESLORATADINE
     Dosage: 5-20 MG, QD

REACTIONS (5)
  - Thrombosis [Unknown]
  - Blood pressure abnormal [Unknown]
  - Hormone level abnormal [Unknown]
  - Off label use [Unknown]
  - Therapy cessation [Unknown]
